FAERS Safety Report 14380147 (Version 3)
Quarter: 2018Q2

REPORT INFORMATION
  Report Type: Report from Study
  Country: JP (occurrence: JP)
  Receive Date: 20180112
  Receipt Date: 20180621
  Transmission Date: 20180711
  Serious: Yes (Hospitalization, Other)
  Sender: FDA-Public Use
  Company Number: JP-AMGEN-JPNNI2018004935

PATIENT
  Age: 61 Year
  Sex: Female
  Weight: 38 kg

DRUGS (21)
  1. 5-FU [Suspect]
     Active Substance: FLUOROURACIL
     Indication: UTERINE CANCER
     Dosage: UNK
     Route: 041
  2. 5-FU [Suspect]
     Active Substance: FLUOROURACIL
     Dosage: UNK
     Route: 041
  3. 5-FU [Suspect]
     Active Substance: FLUOROURACIL
     Dosage: UNK
     Route: 041
  4. NEUTROGIN [Concomitant]
     Active Substance: LENOGRASTIM
     Indication: FEBRILE NEUTROPENIA
     Dosage: 100 MUG, UNK
     Route: 058
     Dates: start: 20170307, end: 20170307
  5. CEFTRIAXONE SODIUM HYDRATE [Concomitant]
     Active Substance: CEFTRIAXONE SODIUM
     Indication: PNEUMONIA PNEUMOCOCCAL
     Dosage: UNK
     Route: 042
  6. 5-FU [Suspect]
     Active Substance: FLUOROURACIL
     Dosage: 950 MG, UNK
     Route: 041
     Dates: start: 20170221, end: 20170224
  7. CISPLATIN. [Suspect]
     Active Substance: CISPLATIN
     Dosage: UNK
     Route: 041
  8. NORADRENALINE [Concomitant]
     Active Substance: NOREPINEPHRINE
     Indication: SEPTIC SHOCK
     Dosage: UNK
     Route: 065
  9. CISPLATIN. [Suspect]
     Active Substance: CISPLATIN
     Indication: UTERINE CANCER
     Dosage: UNK
     Route: 041
  10. CISPLATIN. [Suspect]
     Active Substance: CISPLATIN
     Dosage: UNK
     Route: 041
  11. VANCOMYCIN [Concomitant]
     Active Substance: VANCOMYCIN
     Indication: PNEUMONIA PNEUMOCOCCAL
     Dosage: UNK
     Route: 041
  12. SODIUM CHLORIDE. [Concomitant]
     Active Substance: SODIUM CHLORIDE
     Indication: ELECTROLYTE IMBALANCE
     Dosage: UNK
     Route: 048
  13. VICCILLIN [Concomitant]
     Active Substance: AMPICILLIN
     Indication: PNEUMONIA PNEUMOCOCCAL
     Dosage: UNK
     Route: 065
  14. 5-FU [Suspect]
     Active Substance: FLUOROURACIL
     Dosage: UNK
     Route: 041
  15. 5-FU [Suspect]
     Active Substance: FLUOROURACIL
     Dosage: UNK
     Route: 041
  16. MEROPEN [Concomitant]
     Active Substance: MEROPENEM
     Indication: PNEUMONIA PNEUMOCOCCAL
     Dosage: UNK
     Route: 041
  17. PEGFILGRASTIM [Suspect]
     Active Substance: PEGFILGRASTIM
     Indication: COLONY STIMULATING FACTOR PROPHYLAXIS
     Dosage: 3.6 MG, UNK
     Route: 058
     Dates: start: 20170227, end: 20170227
  18. CISPLATIN. [Suspect]
     Active Substance: CISPLATIN
     Dosage: UNK
     Route: 041
  19. CISPLATIN. [Suspect]
     Active Substance: CISPLATIN
     Dosage: 95 MG, UNK
     Route: 041
     Dates: start: 20170221, end: 20170221
  20. KCL CORRECTIVE [Concomitant]
     Indication: ELECTROLYTE IMBALANCE
     Dosage: UNK
     Route: 065
  21. AMOXICILLIN HYDRATE [Concomitant]
     Active Substance: AMOXICILLIN
     Indication: PNEUMONIA PNEUMOCOCCAL
     Dosage: UNK
     Route: 048

REACTIONS (6)
  - Pneumonia pneumococcal [Recovered/Resolved]
  - Electrolyte imbalance [Recovered/Resolved]
  - Oral candidiasis [Recovered/Resolved]
  - Febrile neutropenia [Recovered/Resolved]
  - Colony stimulating factor therapy [Unknown]
  - Septic shock [Recovered/Resolved]

NARRATIVE: CASE EVENT DATE: 20170306
